FAERS Safety Report 20904795 (Version 1)
Quarter: 2022Q2

REPORT INFORMATION
  Report Type: Spontaneous
  Country: US (occurrence: None)
  Receive Date: 20220601
  Receipt Date: 20220601
  Transmission Date: 20220721
  Serious: No
  Sender: FDA-Public Use
  Company Number: None

PATIENT
  Age: 60 Year
  Sex: Female
  Weight: 106.59 kg

DRUGS (1)
  1. CIMZIA [Suspect]
     Active Substance: CERTOLIZUMAB PEGOL
     Indication: Rheumatoid arthritis
     Dosage: INJECT 400MG (2 VIALS) SUBCUTANEOUSLY AT WEEKS 0, 2,\T\ 4 AS DIRECTED ?
     Route: 058
     Dates: start: 202204

REACTIONS (1)
  - COVID-19 [None]
